FAERS Safety Report 8129627-0 (Version None)
Quarter: 2012Q1

REPORT INFORMATION
  Report Type: 
  Country: None (occurrence: None)
  Receive Date: 20120210
  Receipt Date: 20120206
  Transmission Date: 20120608
  Serious: Yes (Hospitalization)
  Sender: FDA-Public Use
  Company Number: ES-GLAXOSMITHKLINE-B0780683A

PATIENT
  Age: 78 Year
  Sex: Male

DRUGS (1)
  1. ACYCLOVIR [Suspect]
     Route: 048

REACTIONS (5)
  - ATAXIA [None]
  - APHASIA [None]
  - COORDINATION ABNORMAL [None]
  - ACCIDENTAL OVERDOSE [None]
  - HALLUCINATION, VISUAL [None]
